FAERS Safety Report 25274177 (Version 1)
Quarter: 2025Q2

REPORT INFORMATION
  Report Type: Spontaneous
  Country: RO (occurrence: RO)
  Receive Date: 20250506
  Receipt Date: 20250506
  Transmission Date: 20250716
  Serious: Yes (Other)
  Sender: BAUSCH AND LOMB
  Company Number: RO-BIOVITRUM-2025-RO-004199

PATIENT
  Age: 22 Month
  Sex: Male

DRUGS (6)
  1. DEXAMETHASONE [Suspect]
     Active Substance: DEXAMETHASONE
     Indication: Still^s disease
     Route: 065
     Dates: start: 20240418, end: 20250418
  2. DEXAMETHASONE [Suspect]
     Active Substance: DEXAMETHASONE
     Indication: Haemophagocytic lymphohistiocytosis
  3. KINERET [Suspect]
     Active Substance: ANAKINRA
     Indication: Still^s disease
     Route: 058
     Dates: start: 20241231
  4. KINERET [Suspect]
     Active Substance: ANAKINRA
     Route: 065
     Dates: start: 20250418
  5. ETOPOSIDE [Suspect]
     Active Substance: ETOPOSIDE
     Indication: Still^s disease
     Route: 065
     Dates: start: 20240418, end: 20250418
  6. ETOPOSIDE [Suspect]
     Active Substance: ETOPOSIDE
     Indication: Haemophagocytic lymphohistiocytosis

REACTIONS (3)
  - Neutropenia [Recovered/Resolved]
  - Influenza [Unknown]
  - Off label use [Not Recovered/Not Resolved]

NARRATIVE: CASE EVENT DATE: 20241231
